FAERS Safety Report 24892170 (Version 2)
Quarter: 2025Q1

REPORT INFORMATION
  Report Type: Spontaneous
  Country: US (occurrence: US)
  Receive Date: 20250128
  Receipt Date: 20250205
  Transmission Date: 20250409
  Serious: Yes (Other)
  Sender: ABBVIE
  Company Number: US-ABBVIE-6099525

PATIENT
  Age: 79 Year
  Sex: Female
  Weight: 89 kg

DRUGS (5)
  1. REFRESH P.M. [Suspect]
     Active Substance: MINERAL OIL\PETROLATUM
     Indication: Dry eye
     Dosage: ONE ON EACH LOWER EYELID AT NIGHT
     Route: 047
     Dates: start: 2004
  2. LEVOTHYROXINE [Concomitant]
     Active Substance: LEVOTHYROXINE
     Indication: Thyroid disorder
  3. TIMOLOL [Concomitant]
     Active Substance: TIMOLOL
     Indication: Glaucoma
  4. METOPROLOL [Concomitant]
     Active Substance: METOPROLOL
     Indication: Heart rate
  5. REFRESH CLASSIC [Concomitant]
     Active Substance: POLYVINYL ALCOHOL\POVIDONE
     Indication: Dry eye

REACTIONS (8)
  - Blepharoplasty [Recovered/Resolved]
  - Surgery [Unknown]
  - Extrasystoles [Recovered/Resolved]
  - Eye disorder [Recovered/Resolved]
  - Blepharoplasty [Recovered/Resolved]
  - Heart rate decreased [Recovered/Resolved]
  - Glaucoma [Recovered/Resolved]
  - Blepharoplasty [Recovered/Resolved]

NARRATIVE: CASE EVENT DATE: 20190101
